FAERS Safety Report 6087867-9 (Version None)
Quarter: 2009Q1

REPORT INFORMATION
  Report Type: 
  Country: None (occurrence: None)
  Receive Date: 20090223
  Receipt Date: 20090218
  Transmission Date: 20090719
  Serious: No
  Sender: FDA-Public Use
  Company Number: US-B.I. PHARMACEUTICALS,INC./RIDGEFIELD-2009-BP-02028BP

PATIENT
  Sex: Female

DRUGS (3)
  1. SPIRIVA [Suspect]
     Indication: CHRONIC OBSTRUCTIVE PULMONARY DISEASE
     Dosage: 18MCG
     Route: 055
     Dates: start: 20060101
  2. ACTONEL [Concomitant]
     Indication: OSTEOPOROSIS
  3. EVISTA [Concomitant]
     Indication: OSTEOPOROSIS

REACTIONS (4)
  - BLOOD POTASSIUM DECREASED [None]
  - DRY MOUTH [None]
  - FLUID RETENTION [None]
  - HYPERTENSION [None]
